FAERS Safety Report 6278455-X (Version None)
Quarter: 2009Q3

REPORT INFORMATION
  Report Type: 
  Country: None (occurrence: None)
  Receive Date: 20090722
  Receipt Date: 20090717
  Transmission Date: 20100115
  Serious: Yes (Death, Other)
  Sender: FDA-Public Use
  Company Number: PHEH2008US11571

PATIENT
  Sex: Male

DRUGS (7)
  1. GLEEVEC [Suspect]
     Indication: CHRONIC MYELOID LEUKAEMIA
     Dosage: 400 MG, UNK
     Route: 048
     Dates: start: 20050101
  2. ATENOLOL [Concomitant]
     Dosage: 25 MG, UNK
  3. PROTONIX [Concomitant]
     Dosage: 40 MG, UNK
  4. ONDANSETRON [Concomitant]
     Dosage: 16 MG, UNK
  5. OXYCODONE [Concomitant]
     Dosage: 4 MG, PM
  6. HEPARIN [Concomitant]
     Dosage: 5000 U, UNK
  7. NEXAVAR [Concomitant]
     Dosage: 800 MG, UNK

REACTIONS (7)
  - COUGH [None]
  - FATIGUE [None]
  - HAEMATURIA [None]
  - HAEMOPTYSIS [None]
  - HEPATIC NEOPLASM MALIGNANT [None]
  - MALAISE [None]
  - NAUSEA [None]
